FAERS Safety Report 9807731 (Version 2)
Quarter: 2014Q1

REPORT INFORMATION
  Report Type: Spontaneous
  Country: US (occurrence: US)
  Receive Date: 20140110
  Receipt Date: 20140110
  Transmission Date: 20141002
  Serious: Yes (Hospitalization, Other)
  Sender: FDA-Public Use
  Company Number: US-GILEAD-2013-0089896

PATIENT
  Age: 27 Year
  Sex: Female

DRUGS (1)
  1. LETAIRIS [Suspect]
     Indication: PULMONARY ARTERIAL HYPERTENSION
     Dosage: 5 MG, QD
     Route: 048
     Dates: start: 20130924

REACTIONS (4)
  - Cardiac failure acute [Unknown]
  - Hypoxia [Unknown]
  - Pneumonia [Unknown]
  - Sickle cell trait [Unknown]
